FAERS Safety Report 10103450 (Version 1)
Quarter: 2014Q2

REPORT INFORMATION
  Report Type: Spontaneous
  Country: GB (occurrence: GB)
  Receive Date: 20140424
  Receipt Date: 20140424
  Transmission Date: 20141212
  Serious: Yes (Other)
  Sender: FDA-Public Use
  Company Number: GB-WATSON-2014-08026

PATIENT
  Age: 28 Year
  Sex: Female
  Weight: 60 kg

DRUGS (4)
  1. CITALOPRAM (UNKNOWN) [Suspect]
     Indication: DEPRESSION
     Dosage: 20 MG, UNKNOWN
     Route: 048
     Dates: start: 20131128, end: 20140311
  2. CILEST [Concomitant]
     Indication: CONTRACEPTION
     Dosage: 1 DF, DAILY
     Route: 048
     Dates: start: 2004
  3. FLUCLOXACILLIN [Concomitant]
     Indication: ANIMAL BITE
     Dosage: 500 MG, DAILY - 7 DAY COURSE
     Route: 048
     Dates: start: 20131230
  4. DIAZEPAM [Concomitant]
     Indication: ANXIETY
     Dosage: 2 MG, PRN - ONE OFF PRESCRIPTION FOR 28 DOSES
     Route: 048
     Dates: start: 20140110

REACTIONS (1)
  - Increased tendency to bruise [Recovering/Resolving]
